FAERS Safety Report 5805338-9 (Version None)
Quarter: 2008Q3

REPORT INFORMATION
  Report Type: 
  Country: None (occurrence: None)
  Receive Date: 20080709
  Receipt Date: 20080702
  Transmission Date: 20090109
  Serious: Yes (Other)
  Sender: FDA-Public Use
  Company Number: IN-ELI_LILLY_AND_COMPANY-IN200807000663

PATIENT
  Age: 51 Year
  Sex: Female

DRUGS (1)
  1. BYETTA [Suspect]
     Indication: DIABETES MELLITUS
     Dosage: 5 UG, 2/D
     Route: 058
     Dates: start: 20080601, end: 20080101

REACTIONS (4)
  - BLOOD GLUCOSE FLUCTUATION [None]
  - EATING DISORDER [None]
  - NAUSEA [None]
  - VOMITING [None]
